FAERS Safety Report 17823433 (Version 1)
Quarter: 2020Q2

REPORT INFORMATION
  Report Type: Spontaneous
  Country: CA (occurrence: CA)
  Receive Date: 20200526
  Receipt Date: 20200526
  Transmission Date: 20200714
  Serious: Yes (Hospitalization)
  Sender: FDA-Public Use
  Company Number: CA-TEVA-2020-CA-1239105

PATIENT
  Age: 10 Year
  Sex: Male
  Weight: 39 kg

DRUGS (4)
  1. ETOPOSIDE. [Suspect]
     Active Substance: ETOPOSIDE
     Indication: HODGKIN^S DISEASE
     Route: 042
  2. PREDNISONE. [Concomitant]
     Active Substance: PREDNISONE
  3. ONDANSETRON [Concomitant]
     Active Substance: ONDANSETRON
  4. DOXORUBICIN [Concomitant]
     Active Substance: DOXORUBICIN

REACTIONS (5)
  - Oxygen saturation decreased [Recovered/Resolved]
  - Vomiting [Recovered/Resolved]
  - Wheezing [Recovered/Resolved]
  - Abdominal pain [Recovered/Resolved]
  - Cough [Recovered/Resolved]
